FAERS Safety Report 13929092 (Version 1)
Quarter: 2017Q3

REPORT INFORMATION
  Report Type: Spontaneous
  Country: US (occurrence: US)
  Receive Date: 20170901
  Receipt Date: 20170901
  Transmission Date: 20171127
  Serious: No
  Sender: FDA-Public Use
  Company Number: US-ASTRAZENECA-2017SE88999

PATIENT
  Age: 73 Year
  Sex: Female
  Weight: 59 kg

DRUGS (7)
  1. SYNTHROID [Concomitant]
     Active Substance: LEVOTHYROXINE SODIUM
     Indication: HYPOTHYROIDISM
     Route: 048
  2. MECLIZINE [Concomitant]
     Active Substance: MECLIZINE HYDROCHLORIDE
     Indication: VERTIGO
     Dosage: 25 MG, 3X/DAY, AS NEEDED (SOMETIMES ONE FOURTH OF A TABLET OR ONE HALF OF A TABLET, NOT EVERY DAY)
     Route: 048
  3. ACETAMINOPHEN. [Concomitant]
     Active Substance: ACETAMINOPHEN
     Indication: HEADACHE
     Dosage: 650 MG EVERY 4 HOURS WHEN NEEDED
     Route: 048
  4. ATENOLOL. [Concomitant]
     Active Substance: ATENOLOL
     Indication: HYPERTENSION
     Route: 048
  5. NEXIUM 24HR [Suspect]
     Active Substance: ESOMEPRAZOLE MAGNESIUM
     Indication: COUGH
     Route: 048
     Dates: start: 2015
  6. ATORVASTATIN [Concomitant]
     Active Substance: ATORVASTATIN
     Indication: BLOOD CHOLESTEROL ABNORMAL
     Route: 048
  7. SIMETHICONE (DIMETHICONE) [Concomitant]
     Active Substance: DIMETHICONE
     Indication: FLATULENCE
     Dosage: 80.0MG AS REQUIRED
     Route: 048

REACTIONS (2)
  - Rash [Recovering/Resolving]
  - Intentional product misuse [Unknown]

NARRATIVE: CASE EVENT DATE: 2015
